FAERS Safety Report 5079393-0 (Version None)
Quarter: 2006Q3

REPORT INFORMATION
  Report Type: 
  Country: None (occurrence: None)
  Receive Date: 20060720
  Receipt Date: 20051026
  Transmission Date: 20061208
  Serious: Yes (Death)
  Sender: FDA-Public Use
  Company Number: 2005148506

PATIENT
  Sex: Male

DRUGS (2)
  1. CELEBREX [Suspect]
     Indication: INFLAMMATION
     Dates: start: 20020111, end: 20030610
  2. CELEBREX [Suspect]
     Indication: PAIN
     Dates: start: 20020111, end: 20030610

REACTIONS (1)
  - MYOCARDIAL INFARCTION [None]
